FAERS Safety Report 13543838 (Version 1)
Quarter: 2017Q2

REPORT INFORMATION
  Report Type: Report from Study
  Country: DE (occurrence: DE)
  Receive Date: 20170515
  Receipt Date: 20170515
  Transmission Date: 20170830
  Serious: Yes (Other)
  Sender: FDA-Public Use
  Company Number: DE-ADIENNEP-2017AD000114

PATIENT
  Sex: Female

DRUGS (3)
  1. CLOFARABINE. [Suspect]
     Active Substance: CLOFARABINE
     Indication: BONE MARROW CONDITIONING REGIMEN
     Dosage: 30 MG/M2 DAILY
  2. MELPHALAN. [Suspect]
     Active Substance: MELPHALAN
     Indication: BONE MARROW CONDITIONING REGIMEN
     Dosage: 60 MG/M2 DAILY
  3. THIOTEPA. [Suspect]
     Active Substance: THIOTEPA
     Indication: BONE MARROW CONDITIONING REGIMEN
     Dosage: 2 DOSAGES 5 MG/KG DAILY

REACTIONS (7)
  - Acute kidney injury [Unknown]
  - Venoocclusive disease [Unknown]
  - Chronic graft versus host disease [Unknown]
  - Streptococcal sepsis [Unknown]
  - Human herpesvirus 6 infection [Unknown]
  - Mucosal inflammation [Unknown]
  - Acute graft versus host disease [Unknown]
